FAERS Safety Report 14783224 (Version 1)
Quarter: 2018Q2

REPORT INFORMATION
  Report Type: Spontaneous
  Country: BR (occurrence: BR)
  Receive Date: 20180420
  Receipt Date: 20180420
  Transmission Date: 20180711
  Serious: Yes (Hospitalization)
  Sender: FDA-Public Use
  Company Number: BR-BAYER-2018-073682

PATIENT
  Age: 74 Year
  Sex: Male

DRUGS (1)
  1. ASPIRINA 100 MG [Suspect]
     Active Substance: ASPIRIN
     Indication: CORONARY ARTERY DISEASE
     Dosage: 100 MG, QD (AFTER LUNCH)
     Route: 048
     Dates: start: 20170910

REACTIONS (5)
  - Cerebral ischaemia [None]
  - Skin abrasion [None]
  - Injury [None]
  - Acetabulum fracture [None]
  - Pain in extremity [None]

NARRATIVE: CASE EVENT DATE: 20171123
